FAERS Safety Report 5091692-5 (Version None)
Quarter: 2006Q3

REPORT INFORMATION
  Report Type: 
  Country: None (occurrence: None)
  Receive Date: 20060825
  Receipt Date: 20060811
  Transmission Date: 20061208
  Serious: Yes (Hospitalization)
  Sender: FDA-Public Use
  Company Number: RS006072-USA

PATIENT
  Age: 84 Year
  Sex: Female

DRUGS (1)
  1. ACIPHEX [Suspect]
     Dosage: 20 MG, UNKNOWN, ORAL
     Route: 048
     Dates: start: 20060401, end: 20060501

REACTIONS (1)
  - RENAL FAILURE [None]
